FAERS Safety Report 16547069 (Version 3)
Quarter: 2019Q3

REPORT INFORMATION
  Report Type: Report from Study
  Country: None (occurrence: CH)
  Receive Date: 20190709
  Receipt Date: 20190913
  Transmission Date: 20191004
  Serious: Yes (Hospitalization, Other)
  Sender: FDA-Public Use
  Company Number: CH-ABBVIE-19K-151-2845518-00

PATIENT
  Sex: Female

DRUGS (3)
  1. DUODOPA [Suspect]
     Active Substance: CARBIDOPA\LEVODOPA
     Indication: PARKINSON^S DISEASE
     Route: 050
     Dates: start: 20190701, end: 20190703
  2. DUODOPA [Suspect]
     Active Substance: CARBIDOPA\LEVODOPA
     Dosage: M.D 5 ML, CONTINUOUS RATE DAY 3.6 ML/H, CONTINUOUS RATE NIGHT 2.5 ML/H, EXTRA DOSE 1.5 ML
     Route: 050
     Dates: start: 20190703, end: 20190704
  3. DUODOPA [Suspect]
     Active Substance: CARBIDOPA\LEVODOPA
     Dosage: M.D 8 ML, CONTINUOUS RATE DAY 3.6 ML/H, CONTINUOUS RATE NIGHT 2.5 ML/H, EXTRA DOSE 1.5 ML
     Route: 050
     Dates: start: 20190704

REACTIONS (8)
  - Gastrointestinal tract irritation [Unknown]
  - Stoma site pain [Unknown]
  - Abdominal pain upper [Unknown]
  - Stoma site inflammation [Unknown]
  - C-reactive protein increased [Not Recovered/Not Resolved]
  - Asthenia [Unknown]
  - Hypokinesia [Unknown]
  - Peritonitis [Unknown]

NARRATIVE: CASE EVENT DATE: 2019
